FAERS Safety Report 23127467 (Version 1)
Quarter: 2023Q4

REPORT INFORMATION
  Report Type: Spontaneous
  Country: US (occurrence: US)
  Receive Date: 20231031
  Receipt Date: 20231031
  Transmission Date: 20240110
  Serious: Yes (Life-Threatening, Hospitalization, Other)
  Sender: FDA-Public Use
  Company Number: US-drreddys-SPO/USA/23/0180664

PATIENT
  Age: 69 Year
  Sex: Male

DRUGS (4)
  1. DEXAMETHASONE [Suspect]
     Active Substance: DEXAMETHASONE
     Indication: COVID-19 pneumonia
     Route: 042
  2. BARICITINIB [Suspect]
     Active Substance: BARICITINIB
     Indication: COVID-19 pneumonia
     Route: 048
  3. REMDESIVIR [Concomitant]
     Active Substance: REMDESIVIR
     Indication: COVID-19 pneumonia
     Route: 042
  4. OXYGEN [Concomitant]
     Active Substance: OXYGEN
     Indication: COVID-19 pneumonia
     Dosage: HIGH FLOW
     Route: 045

REACTIONS (4)
  - Bronchopulmonary aspergillosis [Recovered/Resolved]
  - Mycotic endophthalmitis [Recovering/Resolving]
  - Cerebral aspergillosis [Recovered/Resolved]
  - Disseminated aspergillosis [Recovered/Resolved]
